FAERS Safety Report 8490375-9 (Version None)
Quarter: 2012Q3

REPORT INFORMATION
  Report Type: 
  Country: None (occurrence: None)
  Receive Date: 20120705
  Receipt Date: 20120629
  Transmission Date: 20120928
  Serious: Yes (Other)
  Sender: FDA-Public Use
  Company Number: FR-PFIZER INC-2012158028

PATIENT
  Age: 50 Year
  Sex: Male

DRUGS (1)
  1. ATORVASTATIN CALCIUM [Suspect]
     Indication: ARTERIOSCLEROSIS
     Dosage: UNK
     Dates: start: 19930101

REACTIONS (1)
  - CUTANEOUS LUPUS ERYTHEMATOSUS [None]
